FAERS Safety Report 13042374 (Version 1)
Quarter: 2016Q4

REPORT INFORMATION
  Report Type: Spontaneous
  Country: US (occurrence: US)
  Receive Date: 20161219
  Receipt Date: 20161219
  Transmission Date: 20170207
  Serious: Yes (Hospitalization)
  Sender: FDA-Public Use
  Company Number: US-FERRINGPH-2016FE06624

PATIENT

DRUGS (8)
  1. DESMOPRESSIN [Interacting]
     Active Substance: DESMOPRESSIN
     Dosage: 0.05MG IN THE MORNING, 0.1MG IN THE EVENING
     Route: 065
  2. LEVOTHYROXINE. [Concomitant]
     Active Substance: LEVOTHYROXINE
     Indication: PRODUCT USED FOR UNKNOWN INDICATION
     Dosage: 75 ?G, 1 TIME DAILY
  3. DESMOPRESSIN [Suspect]
     Active Substance: DESMOPRESSIN
     Indication: PRODUCT USED FOR UNKNOWN INDICATION
     Dosage: 0.1 MG, 2 TIMES DAILY
     Route: 065
  4. ACETAMINOPHEN W/HYDROCODONE [Interacting]
     Active Substance: ACETAMINOPHEN\HYDROCODONE
     Indication: PRODUCT USED FOR UNKNOWN INDICATION
     Dosage: (5MG/300MG), EVERY 6 HOURS
     Route: 065
  5. HYDROCORTISONE. [Concomitant]
     Active Substance: HYDROCORTISONE
     Dosage: 5 MG, 2 TIMES DAILY
  6. BETA-LACTAM ANTIBACTERIALS, PENICILLINS [Concomitant]
     Active Substance: PENICILLIN
  7. CONTRACEPTIVES [Concomitant]
     Active Substance: UNSPECIFIED INGREDIENT
     Route: 048
  8. HYDROCORTISONE. [Concomitant]
     Active Substance: HYDROCORTISONE
     Indication: PRODUCT USED FOR UNKNOWN INDICATION
     Dosage: 30 MG, DAILY

REACTIONS (5)
  - Potentiating drug interaction [Unknown]
  - Vomiting [Unknown]
  - Dizziness [Unknown]
  - Hyponatraemia [Recovered/Resolved]
  - Mental status changes [Unknown]
